FAERS Safety Report 7704760-3 (Version None)
Quarter: 2011Q3

REPORT INFORMATION
  Report Type: 
  Country: None (occurrence: None)
  Receive Date: 20110823
  Receipt Date: 20110815
  Transmission Date: 20111222
  Serious: Yes (Hospitalization, Other)
  Sender: FDA-Public Use
  Company Number: GB-PURDUE-USA-2011-0069912

PATIENT
  Age: 23 Year
  Sex: Male

DRUGS (3)
  1. METHADONE HYDROCHLORIDE [Concomitant]
     Indication: DRUG DEPENDENCE
     Dosage: 30 MG, UNK
     Route: 048
  2. DIAZEPAM [Concomitant]
     Indication: DRUG DEPENDENCE
     Dosage: 25 MG, UNK
     Route: 048
  3. TRAMADOL HCL [Suspect]
     Indication: BACK PAIN
     Dosage: 100 MG, QID
     Dates: start: 20110301, end: 20110520

REACTIONS (3)
  - HALLUCINATION, VISUAL [None]
  - PSYCHOTIC DISORDER [None]
  - HALLUCINATION, AUDITORY [None]
